FAERS Safety Report 10422329 (Version 1)
Quarter: 2014Q3

REPORT INFORMATION
  Report Type: Report from Study
  Country: BR (occurrence: BR)
  Receive Date: 20140901
  Receipt Date: 20140901
  Transmission Date: 20150326
  Serious: Yes (Hospitalization)
  Sender: FDA-Public Use
  Company Number: PHHY2014BR109221

PATIENT
  Sex: Male
  Weight: 104 kg

DRUGS (11)
  1. EXELON PATCH [Suspect]
     Active Substance: RIVASTIGMINE
     Dosage: 9.5 MG, DAILY (18MG/10CM2, ONE ADHESIVE DAILY)
     Route: 062
  2. AAS [Concomitant]
     Active Substance: ASPIRIN
     Indication: BLOOD DISORDER
     Dosage: UNK UKN, UNK
  3. EXELON PATCH [Suspect]
     Active Substance: RIVASTIGMINE
     Indication: DEMENTIA ALZHEIMER^S TYPE
     Dosage: 9.5 MG, DAILY (18MG/10CM2, ONE ADHESIVE DAILY)
     Route: 062
  4. SIMVASTATIN. [Concomitant]
     Active Substance: SIMVASTATIN
     Indication: BLOOD CHOLESTEROL
     Dosage: 40 MG, QHS (SOMETIME, THE PATIENT TOOK AT NIGHT, THE PATIENT DID NOT USE EVERYDAY)
  5. ENALAPRIL MALEATE. [Concomitant]
     Active Substance: ENALAPRIL MALEATE
     Indication: BLOOD PRESSURE
     Dosage: UNK UKN, UNK
  6. GLIFAGE [Concomitant]
     Active Substance: METFORMIN HYDROCHLORIDE
     Indication: BLOOD GLUCOSE ABNORMAL
     Dosage: UNK UKN, UNK
  7. ATENOLOL. [Concomitant]
     Active Substance: ATENOLOL
     Indication: BLOOD PRESSURE
     Dosage: UNK UKN, UNK
  8. GLIFAGE [Concomitant]
     Active Substance: METFORMIN HYDROCHLORIDE
     Indication: DIABETES MELLITUS
  9. CATAFLAM [Suspect]
     Active Substance: DICLOFENAC POTASSIUM
     Indication: PAIN
     Dosage: UNK UKN, 5QD (11.6 MG/G, MORE OR LESS FIVE TIMES)
  10. EPHYNAL [Concomitant]
     Active Substance: .ALPHA.-TOCOPHEROL ACETATE
     Indication: VITAMIN SUPPLEMENTATION
     Dosage: UNK UKN, UNK
  11. MEMANTINE HYDROCHLORIDE [Concomitant]
     Active Substance: MEMANTINE HYDROCHLORIDE
     Indication: MEMORY IMPAIRMENT
     Dosage: UNK UKN, UNK

REACTIONS (5)
  - Spinal pain [Unknown]
  - Procedural pain [Unknown]
  - Fall [Unknown]
  - Spinal column injury [Unknown]
  - Neuralgia [Unknown]
